FAERS Safety Report 18527595 (Version 7)
Quarter: 2021Q2

REPORT INFORMATION
  Report Type: Report from Study
  Country: ES (occurrence: ES)
  Receive Date: 20201120
  Receipt Date: 20210604
  Transmission Date: 20210717
  Serious: Yes (Death, Life-Threatening, Hospitalization)
  Sender: FDA-Public Use
  Company Number: ES-PFIZER INC-2020412019

PATIENT
  Age: 55 Year
  Sex: Female
  Weight: 54 kg

DRUGS (4)
  1. FENTANYL. [Concomitant]
     Active Substance: FENTANYL
     Indication: PAIN
     Dosage: 50 UG, 1 PATCH EVERY 72 HOURS
     Route: 062
     Dates: start: 20201020
  2. IRON PROTEINSUCCINYLATE [Concomitant]
     Indication: ANAEMIA
     Dosage: 40 MG, DAILY
     Route: 048
     Dates: start: 20201020
  3. BINIMETINIB [Suspect]
     Active Substance: BINIMETINIB
     Indication: NON-SMALL CELL LUNG CANCER
     Dosage: 45 MG, TWICE DAILY CONTINUOUS
     Route: 048
     Dates: start: 20200827, end: 20200907
  4. ENCORAFENIB [Suspect]
     Active Substance: ENCORAFENIB
     Indication: NON-SMALL CELL LUNG CANCER
     Dosage: 450 MG, ONCE DAILY CONTINUOUS
     Route: 048
     Dates: start: 20200827, end: 20200907

REACTIONS (3)
  - Condition aggravated [Recovered/Resolved]
  - Anaemia [Not Recovered/Not Resolved]
  - Cancer pain [Recovered/Resolved]

NARRATIVE: CASE EVENT DATE: 20201021
